FAERS Safety Report 13798732 (Version 1)
Quarter: 2017Q3

REPORT INFORMATION
  Report Type: Spontaneous
  Country: US (occurrence: US)
  Receive Date: 20170727
  Receipt Date: 20170727
  Transmission Date: 20171127
  Serious: No
  Sender: FDA-Public Use
  Company Number: US-JNJFOC-20170710171

PATIENT
  Age: 66 Year
  Sex: Female
  Weight: 57.15 kg

DRUGS (5)
  1. VITAMIN C [Concomitant]
     Active Substance: ASCORBIC ACID
     Indication: ROUTINE HEALTH MAINTENANCE
     Route: 065
  2. WOMENS ROGAINE UNSCENTED [Suspect]
     Active Substance: MINOXIDIL
     Indication: ALOPECIA
     Dosage: 1/2 TO 3/4 CAPFUL
     Route: 061
     Dates: start: 20170606, end: 20170621
  3. WOMENS ROGAINE UNSCENTED [Suspect]
     Active Substance: MINOXIDIL
     Indication: ALOPECIA
     Dosage: 1/2 TO 3/4 CAPFUL
     Route: 061
     Dates: start: 20170704
  4. LUTEIN [Concomitant]
     Active Substance: LUTEIN
     Indication: EYE DISORDER
     Route: 065
  5. VITAMIN D [Concomitant]
     Active Substance: CHOLECALCIFEROL
     Indication: ROUTINE HEALTH MAINTENANCE
     Route: 065

REACTIONS (4)
  - Alopecia [Not Recovered/Not Resolved]
  - Inappropriate schedule of drug administration [Not Recovered/Not Resolved]
  - Overdose [Unknown]
  - Product formulation issue [Unknown]

NARRATIVE: CASE EVENT DATE: 20170606
